FAERS Safety Report 5797409-0 (Version None)
Quarter: 2008Q3

REPORT INFORMATION
  Report Type: 
  Country: None (occurrence: None)
  Receive Date: 20080701
  Receipt Date: 20080521
  Transmission Date: 20090109
  Serious: No
  Sender: FDA-Public Use
  Company Number: US-BOEHRINGER INGELHEIM GMBH, GERMANY-2008-BP-07994BP

PATIENT

DRUGS (2)
  1. FLOMAX [Suspect]
  2. ZYPREXA [Concomitant]

REACTIONS (1)
  - INSOMNIA [None]
